FAERS Safety Report 14949575 (Version 2)
Quarter: 2018Q3

REPORT INFORMATION
  Report Type: Report from Study
  Country: US (occurrence: US)
  Receive Date: 20180529
  Receipt Date: 20180816
  Transmission Date: 20181010
  Serious: No
  Sender: FDA-Public Use
  Company Number: PHEH2018US020717

PATIENT
  Age: 50 Year
  Sex: Female

DRUGS (2)
  1. COSENTYX [Suspect]
     Active Substance: SECUKINUMAB
     Dosage: 300 MG, QMO
     Route: 058
  2. COSENTYX [Suspect]
     Active Substance: SECUKINUMAB
     Indication: PSORIASIS
     Dosage: UNK
     Route: 065

REACTIONS (6)
  - Arthropod bite [Unknown]
  - Musculoskeletal stiffness [Unknown]
  - Pruritus [Unknown]
  - Weight increased [Unknown]
  - Mass [Unknown]
  - Malaise [Unknown]

NARRATIVE: CASE EVENT DATE: 20180510
